FAERS Safety Report 20821397 (Version 1)
Quarter: 2022Q2

REPORT INFORMATION
  Report Type: Spontaneous
  Country: DE (occurrence: DE)
  Receive Date: 20220512
  Receipt Date: 20220512
  Transmission Date: 20220721
  Serious: Yes (Other)
  Sender: FDA-Public Use
  Company Number: DE-ROCHE-2398951

PATIENT
  Sex: Male
  Weight: 84 kg

DRUGS (13)
  1. BENDAMUSTINE HYDROCHLORIDE [Suspect]
     Active Substance: BENDAMUSTINE HYDROCHLORIDE
     Indication: Diffuse large B-cell lymphoma
     Dosage: 1ST LINE, VIP + R-CHOP 2 CYCLES
     Route: 065
     Dates: start: 20190205, end: 20190327
  2. DOXORUBICIN [Suspect]
     Active Substance: DOXORUBICIN
     Indication: Diffuse large B-cell lymphoma
     Dosage: 50 MILLIGRAM/SQ. METER (1ST LINE, VIP + R-CHOP 2 CYCLES)
     Route: 065
     Dates: start: 20190205, end: 20190327
  3. AZATHIOPRINE [Suspect]
     Active Substance: AZATHIOPRINE
     Indication: Diffuse large B-cell lymphoma
     Dosage: 1ST LINE, VIP + R-CHOP 2 CYCLES
     Route: 065
     Dates: start: 20190205, end: 20190327
  4. METHOTREXATE [Suspect]
     Active Substance: METHOTREXATE
     Indication: Diffuse large B-cell lymphoma
     Dosage: 1ST LINE, VIP + R-CHOP 2 CYCLES
     Route: 065
     Dates: start: 20190205, end: 20190327
  5. IFOSFAMIDE [Suspect]
     Active Substance: IFOSFAMIDE
     Indication: Diffuse large B-cell lymphoma
     Dosage: 500 MILLIGRAM/SQ. METER (2ND LINE, R-ICE 2 CYCLES, ON DAY 2 OF EACH CYCLE)
     Route: 065
     Dates: start: 20190415, end: 20190508
  6. RITUXIMAB [Suspect]
     Active Substance: RITUXIMAB
     Indication: Diffuse large B-cell lymphoma
     Dosage: 1ST LINE, VIP + R-CHOP 2 CYCLES
     Route: 065
     Dates: start: 20190205, end: 20190327
  7. RITUXIMAB [Suspect]
     Active Substance: RITUXIMAB
     Dosage: 2ND LINE, R-ICE 2 CYCLES
     Route: 065
     Dates: start: 20190415, end: 20190508
  8. ETOPOSIDE [Suspect]
     Active Substance: ETOPOSIDE
     Indication: Diffuse large B-cell lymphoma
     Dosage: 100 MILLIGRAM/SQ. METER (2ND LINE, R-ICE 2 CYCLES, ON DAY 3 OF EACH CYCLE)
     Route: 065
     Dates: start: 20190415, end: 20190508
  9. THALIDOMIDE [Suspect]
     Active Substance: THALIDOMIDE
     Indication: Diffuse large B-cell lymphoma
     Dosage: 1ST LINE, VIP + R-CHOP 2 CYCLES
     Route: 065
     Dates: start: 20190205, end: 20190327
  10. PYRVINIUM PAMOATE [Suspect]
     Active Substance: PYRVINIUM PAMOATE
     Indication: Diffuse large B-cell lymphoma
     Dosage: 1ST LINE, VIP + R-CHOP 2 CYCLES
     Route: 065
     Dates: start: 20190205, end: 20190327
  11. DEXAMETHASONE [Suspect]
     Active Substance: DEXAMETHASONE
     Indication: Diffuse large B-cell lymphoma
     Dosage: 1ST LINE, VIP + R-CHOP 2 CYCLES
     Route: 065
     Dates: start: 20190205, end: 20190327
  12. CYCLOPHOSPHAMIDE [Suspect]
     Active Substance: CYCLOPHOSPHAMIDE
     Indication: Diffuse large B-cell lymphoma
     Dosage: 1ST LINE, VIP + R-CHOP 2 CYCLES
     Route: 065
     Dates: start: 20190205, end: 20190327
  13. VINCRISTINE [Suspect]
     Active Substance: VINCRISTINE
     Indication: Diffuse large B-cell lymphoma
     Dosage: 1.4 MILLIGRAM/SQ. METER (1ST LINE, VIP + R-CHOP 2 CYCLES)
     Route: 065
     Dates: start: 20190205, end: 20190327

REACTIONS (4)
  - Neutropenia [Unknown]
  - Infection [Unknown]
  - Neutrophil count increased [Unknown]
  - Platelet count increased [Unknown]
